FAERS Safety Report 9850001 (Version 1)
Quarter: 2013Q4

REPORT INFORMATION
  Report Type: Spontaneous
  Country: US (occurrence: None)
  Receive Date: 20131226
  Receipt Date: 20131226
  Transmission Date: 20140711
  Serious: Yes (Other)
  Sender: FDA-Public Use
  Company Number: PHEH2012US014665

PATIENT
  Age: 50 Year
  Sex: Female

DRUGS (2)
  1. AFINITOR (RAD) UNKNOWN [Suspect]
     Indication: BREAST CANCER
     Route: 048
     Dates: start: 201204
  2. EXEMESTANE [Suspect]

REACTIONS (7)
  - Neoplasm [None]
  - Stomatitis [None]
  - Hyperglycaemia [None]
  - Hypercholesterolaemia [None]
  - Anaemia [None]
  - Fatigue [None]
  - Malignant neoplasm progression [None]
